FAERS Safety Report 13603837 (Version 2)
Quarter: 2017Q2

REPORT INFORMATION
  Report Type: Spontaneous
  Country: US (occurrence: US)
  Receive Date: 20170602
  Receipt Date: 20170608
  Transmission Date: 20170830
  Serious: No
  Sender: FDA-Public Use
  Company Number: US-ASTRAZENECA-2017SE57851

PATIENT
  Sex: Female

DRUGS (2)
  1. SYMBICORT [Suspect]
     Active Substance: BUDESONIDE\FORMOTEROL FUMARATE DIHYDRATE
     Indication: ASTHMA
     Dosage: PMDI UNKNOWN UNKNOWN
     Route: 055
     Dates: start: 2017
  2. SYMBICORT [Suspect]
     Active Substance: BUDESONIDE\FORMOTEROL FUMARATE DIHYDRATE
     Indication: ASTHMA
     Route: 055

REACTIONS (7)
  - Bronchitis [Recovered/Resolved]
  - Food allergy [Unknown]
  - Chest discomfort [Unknown]
  - Oral candidiasis [Not Recovered/Not Resolved]
  - Insurance issue [Unknown]
  - Lip disorder [Unknown]
  - Chest pain [Unknown]

NARRATIVE: CASE EVENT DATE: 2017
